FAERS Safety Report 17881465 (Version 1)
Quarter: 2020Q2

REPORT INFORMATION
  Report Type: Spontaneous
  Country: US (occurrence: US)
  Receive Date: 20200610
  Receipt Date: 20200610
  Transmission Date: 20200714
  Serious: No
  Sender: FDA-Public Use
  Company Number: US-COLLEGIUM PHARMACEUTICAL, INC.-2019CGM00259

PATIENT
  Age: 49 Year
  Sex: Female
  Weight: 78.01 kg

DRUGS (8)
  1. XTAMPZA ER [Suspect]
     Active Substance: OXYCODONE
     Indication: NEUROPATHY PERIPHERAL
     Dosage: 13.5 MG, 2X/DAY
     Route: 048
     Dates: start: 20190916, end: 20190919
  2. XTAMPZA ER [Suspect]
     Active Substance: OXYCODONE
     Indication: SCIATICA
  3. XTAMPZA ER [Suspect]
     Active Substance: OXYCODONE
     Indication: ARTHRALGIA
  4. XTAMPZA ER [Suspect]
     Active Substance: OXYCODONE
     Indication: PAIN IN EXTREMITY
  5. XTAMPZA ER [Suspect]
     Active Substance: OXYCODONE
     Indication: NERVE COMPRESSION
  6. OXYCODONE [Concomitant]
     Active Substance: OXYCODONE
     Dosage: 5 MG, 3X/DAY
     Dates: start: 201909
  7. XTAMPZA ER [Suspect]
     Active Substance: OXYCODONE
     Indication: ARTHRALGIA
  8. LYRICA [Concomitant]
     Active Substance: PREGABALIN

REACTIONS (7)
  - Rash [Not Recovered/Not Resolved]
  - Pruritus [Recovering/Resolving]
  - Hallucination, visual [Unknown]
  - Headache [Recovered/Resolved]
  - Tinnitus [Unknown]
  - Burning sensation [Recovering/Resolving]
  - Nausea [Unknown]

NARRATIVE: CASE EVENT DATE: 20190916
